FAERS Safety Report 6702689-0 (Version None)
Quarter: 2010Q2

REPORT INFORMATION
  Report Type: 
  Country: None (occurrence: None)
  Receive Date: 20100429
  Receipt Date: 20100419
  Transmission Date: 20101027
  Serious: Yes (Hospitalization, Other)
  Sender: FDA-Public Use
  Company Number: US-BAXTER-2010BH007157

PATIENT
  Age: 68 Year
  Sex: Female

DRUGS (2)
  1. DIANEAL [Suspect]
     Indication: PERITONEAL DIALYSIS
     Route: 033
     Dates: start: 20081024
  2. DIANEAL [Suspect]
     Route: 033
     Dates: start: 20081024

REACTIONS (2)
  - PANCREATITIS [None]
  - PERITONEAL CLOUDY EFFLUENT [None]
